FAERS Safety Report 12593223 (Version 1)
Quarter: 2016Q3

REPORT INFORMATION
  Report Type: Spontaneous
  Country: US (occurrence: US)
  Receive Date: 20160726
  Receipt Date: 20160726
  Transmission Date: 20161109
  Serious: No
  Sender: FDA-Public Use
  Company Number: US-ABBVIE-16P-163-1636943-00

PATIENT
  Sex: Female

DRUGS (2)
  1. SYNTHROID [Suspect]
     Active Substance: LEVOTHYROXINE SODIUM
     Indication: HYPOTHYROIDISM
     Dosage: TAKE ONE TABLET SUN, MON, WED, THUR, SAT.
     Route: 048
     Dates: start: 2013
  2. SYNTHROID [Suspect]
     Active Substance: LEVOTHYROXINE SODIUM
     Indication: HYPOTHYROIDISM
     Dosage: TAKE ONE TABLET ON TUES AND FRIDAY
     Route: 048
     Dates: start: 2013

REACTIONS (6)
  - Product quality issue [Unknown]
  - Nervousness [Recovered/Resolved]
  - Treatment noncompliance [Unknown]
  - Insomnia [Recovering/Resolving]
  - Disturbance in attention [Not Recovered/Not Resolved]
  - Tachycardia [Recovered/Resolved]

NARRATIVE: CASE EVENT DATE: 20160517
